FAERS Safety Report 9528732 (Version 1)
Quarter: 2013Q1

REPORT INFORMATION
  Report Type: Spontaneous
  Country: US (occurrence: None)
  Receive Date: 20130314
  Receipt Date: 20130314
  Transmission Date: 20140127
  Serious: No
  Sender: FDA-Public Use
  Company Number: 1211USA012654

PATIENT
  Age: 87 Year
  Sex: Female

DRUGS (3)
  1. VICTRELIS [Suspect]
     Indication: HEPATITIS C
     Dosage: 800 MG, QD 3 TIMES DAILY, ORAL
     Route: 048
     Dates: end: 20121129
  2. PEGASYS [Suspect]
     Dosage: UNK
     Dates: end: 20121129
  3. RIBASPHERE (RIBAVIRIN) [Suspect]
     Dates: end: 20121129

REACTIONS (4)
  - Mood swings [None]
  - Dizziness [None]
  - Decreased appetite [None]
  - Vitreous floaters [None]
